FAERS Safety Report 9233165 (Version 4)
Quarter: 2014Q1

REPORT INFORMATION
  Report Type: Report from Study
  Country: RO (occurrence: RO)
  Receive Date: 20130416
  Receipt Date: 20140307
  Transmission Date: 20141002
  Serious: Yes (Hospitalization)
  Sender: FDA-Public Use
  Company Number: RO-JNJFOC-20130403675

PATIENT
  Age: 37 Year
  Sex: Female
  Weight: 73 kg

DRUGS (3)
  1. PALIPERIDONE PALMITATE [Suspect]
     Indication: SCHIZOPHRENIA
     Route: 030
     Dates: start: 20130218, end: 20130325
  2. PALIPERIDONE PALMITATE [Suspect]
     Indication: SCHIZOPHRENIA
     Route: 030
  3. QUETIAPINE [Concomitant]
     Indication: SCHIZOPHRENIA
     Dosage: TWICE IN THE EVENING
     Route: 048
     Dates: start: 20121126, end: 20130212

REACTIONS (1)
  - Schizophrenia [Recovered/Resolved]
